FAERS Safety Report 9248943 (Version 1)
Quarter: 2013Q1

REPORT INFORMATION
  Report Type: Spontaneous
  Country: US (occurrence: None)
  Receive Date: 20130305
  Receipt Date: 20130305
  Transmission Date: 20140127
  Serious: Yes (Other)
  Sender: FDA-Public Use
  Company Number: 163-21880-12093228

PATIENT
  Age: 65 Year
  Sex: Female

DRUGS (5)
  1. REVLIMID [Suspect]
     Indication: PLASMA CELL MYELOMA
     Dosage: 25MG, 21 IN 21 D, PO
     Route: 048
     Dates: start: 20120728
  2. DEXAMETHASONE (DEXAMETHASONE) [Concomitant]
  3. ACETAMINOPHEN-CODEINE #3 (PANADEINE CO) [Concomitant]
  4. ONDANSETRON (ONDANSETRON) [Concomitant]
  5. VITAMIN D (ERGOCALCIFEROL) [Concomitant]

REACTIONS (1)
  - Pyrexia [None]
